FAERS Safety Report 7970920-X (Version None)
Quarter: 2011Q4

REPORT INFORMATION
  Report Type: 
  Country: None (occurrence: None)
  Receive Date: 20111212
  Receipt Date: 20111208
  Transmission Date: 20120403
  Serious: Yes (Life-Threatening, Hospitalization)
  Sender: FDA-Public Use
  Company Number: US-JNJFOC-20111105357

PATIENT
  Sex: Female
  Weight: 77.57 kg

DRUGS (8)
  1. ANCEF [Concomitant]
  2. ADVAIR DISKUS 100/50 [Concomitant]
  3. LASIX [Concomitant]
  4. OMEPRAZOLE [Concomitant]
  5. LISINOPRIL [Concomitant]
  6. XARELTO [Suspect]
     Indication: KNEE ARTHROPLASTY
     Route: 048
  7. EVISTA [Concomitant]
  8. ZOSYN [Concomitant]
     Indication: PNEUMONIA

REACTIONS (2)
  - PULMONARY EMBOLISM [None]
  - HAEMORRHAGE [None]
